FAERS Safety Report 9471191 (Version 2)
Quarter: 2013Q3

REPORT INFORMATION
  Report Type: Spontaneous
  Country: US (occurrence: US)
  Receive Date: 20130822
  Receipt Date: 20130904
  Transmission Date: 20140515
  Serious: Yes (Hospitalization)
  Sender: FDA-Public Use
  Company Number: US-B.I. PHARMACEUTICALS,INC./RIDGEFIELD-2013-BI-25803BP

PATIENT
  Sex: Male
  Weight: 66.8 kg

DRUGS (11)
  1. PRADAXA [Suspect]
     Indication: ATRIAL FIBRILLATION
     Dosage: 150 MG
     Route: 048
     Dates: start: 20121018, end: 20121025
  2. PRADAXA [Suspect]
     Indication: ANTICOAGULANT THERAPY
  3. PRADAXA [Suspect]
     Indication: CEREBROVASCULAR ACCIDENT PROPHYLAXIS
  4. GLIPIZIDE [Concomitant]
  5. ALLOPURINOL [Concomitant]
     Dosage: 300 MG
     Route: 048
  6. AMIODARONE [Concomitant]
     Indication: ATRIAL FIBRILLATION
     Dosage: 400 MG
     Route: 048
  7. METFORMIN [Concomitant]
  8. PIOGLITAZONE [Concomitant]
  9. JANUVIA [Concomitant]
     Dosage: 50 MG
     Route: 048
  10. NIFEDICAL XL [Concomitant]
     Dosage: 30 MG
     Route: 048
  11. PRANDIN [Concomitant]
     Dosage: 1.5 MG
     Route: 048

REACTIONS (6)
  - Pericardial haemorrhage [Unknown]
  - Renal failure acute [Not Recovered/Not Resolved]
  - Anaemia [Unknown]
  - Hepatic enzyme increased [Unknown]
  - Toxicity to various agents [Unknown]
  - Coagulopathy [Unknown]
